FAERS Safety Report 24634795 (Version 1)
Quarter: 2024Q4

REPORT INFORMATION
  Report Type: Spontaneous
  Country: JP (occurrence: JP)
  Receive Date: 20241119
  Receipt Date: 20241119
  Transmission Date: 20250115
  Serious: Yes (Hospitalization, Other)
  Sender: MEDEXUS PHARMA
  Company Number: JP-MEDEXUS PHARMA, INC.-2024MED00447

PATIENT
  Sex: Female

DRUGS (1)
  1. METHOTREXATE [Suspect]
     Active Substance: METHOTREXATE
     Indication: Rheumatoid arthritis
     Route: 048

REACTIONS (3)
  - Pharyngeal haemorrhage [Unknown]
  - Tonsillar haemorrhage [Unknown]
  - Epstein-Barr virus associated lymphoproliferative disorder [Unknown]
